FAERS Safety Report 8620918-3 (Version None)
Quarter: 2012Q3

REPORT INFORMATION
  Report Type: 
  Country: None (occurrence: None)
  Receive Date: 20120824
  Receipt Date: 20120814
  Transmission Date: 20120928
  Serious: Yes (Other)
  Sender: FDA-Public Use
  Company Number: MX-BRISTOL-MYERS SQUIBB COMPANY-16859746

PATIENT
  Age: 58 Year
  Sex: Female
  Weight: 90 kg

DRUGS (2)
  1. ALBUTEROL SULATE [Concomitant]
     Indication: ASTHMA
     Dosage: 1DF= 2 SHOTS
     Route: 045
     Dates: start: 20020101
  2. IRBESARTAN [Suspect]
     Indication: HYPERTENSION
     Route: 048
     Dates: start: 20110101, end: 20120701

REACTIONS (7)
  - PAIN IN EXTREMITY [None]
  - CHEST PAIN [None]
  - CARDIAC DISORDER [None]
  - HYPERTENSION [None]
  - ASTHMA [None]
  - BRONCHITIS [None]
  - DYSPNOEA [None]
